FAERS Safety Report 8205021-9 (Version None)
Quarter: 2012Q1

REPORT INFORMATION
  Report Type: 
  Country: None (occurrence: None)
  Receive Date: 20120309
  Receipt Date: 20120227
  Transmission Date: 20120608
  Serious: Yes (Hospitalization)
  Sender: FDA-Public Use
  Company Number: VAL_00714_2012

PATIENT
  Age: 67 Year
  Sex: Female

DRUGS (3)
  1. ROCALTROL [Suspect]
     Indication: OSTEOPOROSIS
     Dosage: (DF ORAL), (REDUCED DOSE ORAL)
     Route: 048
     Dates: start: 20050101, end: 20100101
  2. ROCALTROL [Suspect]
     Indication: OSTEOPOROSIS
     Dosage: (DF ORAL), (REDUCED DOSE ORAL)
     Route: 048
     Dates: start: 20100801
  3. CALCIUM PREPARTIONS [Concomitant]

REACTIONS (7)
  - CALCULUS BLADDER [None]
  - HYPERCALCAEMIA [None]
  - RENAL IMPAIRMENT [None]
  - OFF LABEL USE [None]
  - MALAISE [None]
  - GAIT DISTURBANCE [None]
  - NAUSEA [None]
